FAERS Safety Report 9621612 (Version 1)
Quarter: 2013Q4

REPORT INFORMATION
  Report Type: Spontaneous
  Country: US (occurrence: US)
  Receive Date: 20131015
  Receipt Date: 20131015
  Transmission Date: 20140711
  Serious: No
  Sender: FDA-Public Use
  Company Number: US-PFIZER INC-2013290975

PATIENT
  Age: 46 Year
  Sex: Female
  Weight: 65.8 kg

DRUGS (2)
  1. ESTRING [Suspect]
     Indication: HORMONE REPLACEMENT THERAPY
     Dosage: UNK
     Route: 067
     Dates: start: 201307
  2. PROMETRIUM [Suspect]
     Indication: HORMONE REPLACEMENT THERAPY
     Dosage: 200 MG, CYCLIC (TWO WEEKS ON AND TWO WEEKS OFF)

REACTIONS (4)
  - Muscle spasms [Unknown]
  - Amenorrhoea [Unknown]
  - Breast tenderness [Unknown]
  - Drug intolerance [Unknown]
